FAERS Safety Report 19179730 (Version 1)
Quarter: 2021Q2

REPORT INFORMATION
  Report Type: Spontaneous
  Country: US (occurrence: US)
  Receive Date: 20210426
  Receipt Date: 20210426
  Transmission Date: 20210717
  Serious: No
  Sender: FDA-Public Use
  Company Number: None

PATIENT
  Age: 6 Year
  Sex: Female
  Weight: 25.2 kg

DRUGS (4)
  1. MIRALAX [Suspect]
     Active Substance: POLYETHYLENE GLYCOL 3350
     Indication: CONSTIPATION
     Route: 048
     Dates: start: 20180801, end: 20210301
  2. VITAMIN D [Concomitant]
     Active Substance: VITAMIN D NOS
  3. MULTIVITAMINS [Concomitant]
     Active Substance: VITAMINS
  4. FISH OIL [Concomitant]
     Active Substance: FISH OIL

REACTIONS (1)
  - Tic [None]

NARRATIVE: CASE EVENT DATE: 20200830
